FAERS Safety Report 9181421 (Version 1)
Quarter: 2013Q1

REPORT INFORMATION
  Report Type: Spontaneous
  Country: US (occurrence: US)
  Receive Date: 20130322
  Receipt Date: 20130322
  Transmission Date: 20140127
  Serious: Yes (Hospitalization)
  Sender: FDA-Public Use
  Company Number: US-BAYER-2013-033996

PATIENT
  Age: 40 Year
  Sex: Female
  Weight: 73 kg

DRUGS (12)
  1. BEYAZ [Suspect]
     Indication: MENORRHAGIA
  2. YASMIN [Suspect]
     Indication: PREMENSTRUAL SYNDROME
  3. YASMIN [Suspect]
     Indication: SKIN DISORDER
  4. YASMIN [Suspect]
     Indication: OVULATION PAIN
  5. YAZ [Suspect]
     Indication: MENORRHAGIA
  6. FLEXERIL [Concomitant]
     Indication: MUSCLE SPASMS
     Dosage: 10 MG, Q 8 HRS
  7. PRILOSEC [Concomitant]
     Dosage: 20 MG, UNK
  8. TRAMADOL [Concomitant]
     Indication: PAIN
     Dosage: 50 MG, Q 8 HRS
  9. LEXAPRO [Concomitant]
     Dosage: 10 MG, UNK
  10. ALPRAZOLAM [Concomitant]
     Indication: ANXIETY
     Dosage: 0.25 MG, HS AS NEEDED
  11. OMEGA PLUS DHA [Concomitant]
     Dosage: 1 TAB QD
  12. MVI [Concomitant]
     Dosage: 1 QD

REACTIONS (1)
  - Pulmonary embolism [None]
